FAERS Safety Report 7042508-9 (Version None)
Quarter: 2010Q4

REPORT INFORMATION
  Report Type: 
  Country: None (occurrence: None)
  Receive Date: 20101013
  Receipt Date: 20090820
  Transmission Date: 20110411
  Serious: Yes (Other)
  Sender: FDA-Public Use
  Company Number: US-ASTRAZENECA-2009SE14771

PATIENT
  Age: 17 Year
  Sex: Male

DRUGS (2)
  1. SYMBICORT [Suspect]
     Indication: ASTHMA
     Dosage: 160/4.5 MCG, 2 INHALATIONS TWO TIMES A DAY.
     Route: 055
  2. PREDNISONE [Concomitant]

REACTIONS (1)
  - HYPERGLYCAEMIA [None]
